FAERS Safety Report 7438872-9 (Version None)
Quarter: 2011Q2

REPORT INFORMATION
  Report Type: 
  Country: None (occurrence: None)
  Receive Date: 20110426
  Receipt Date: 20110414
  Transmission Date: 20111010
  Serious: Yes (Hospitalization, Other)
  Sender: FDA-Public Use
  Company Number: US-ELI_LILLY_AND_COMPANY-US201006001768

PATIENT
  Sex: Female

DRUGS (16)
  1. ASPIRIN [Concomitant]
     Route: 065
  2. OSCAL /00108001/ [Concomitant]
     Dosage: 500 MG, BID
     Route: 065
  3. LOVASTATIN [Concomitant]
     Dosage: 20 MG, EACH EVENING
     Route: 065
  4. STOOL SOFTENER [Concomitant]
     Route: 065
  5. ZYRTEC [Concomitant]
     Dosage: UNK, AS NEEDED (24 HOURS RELIEF)
     Route: 065
  6. CELEBREX [Concomitant]
     Dosage: 200 MG, EACH EVENING
     Route: 065
  7. CENTRUM SILVER [Concomitant]
     Route: 065
  8. METHOTREXATE [Concomitant]
     Dosage: 2.5 MG, ONE PILL IN THE MORNING AND ONE IN THE EVENING ONLY ON WEDNESDAYS
     Route: 065
  9. FORTEO [Suspect]
     Indication: OSTEOPOROSIS
     Dosage: 20 UG, DAILY (1/D)
     Dates: start: 20090409
  10. FORTEO [Suspect]
     Dosage: 20 UG, QD
     Route: 065
  11. FOLIC ACID [Concomitant]
     Dosage: 1 MG, BID
     Route: 065
  12. FLUTICASONE PROPIONATE [Concomitant]
     Dosage: UNK, AS NEEDED (ONE SQUIRT PER NOSTRIL)
  13. IRON [Concomitant]
  14. VISINE-A [Concomitant]
     Indication: EYE PAIN
     Dosage: UNK, AS NEEDED
     Route: 065
  15. ATENOLOL [Concomitant]
     Dosage: 50 MG, BID
     Route: 065
  16. FORTEO [Suspect]
     Dosage: 20 UG, QD
     Route: 065

REACTIONS (9)
  - KNEE ARTHROPLASTY [None]
  - OEDEMA PERIPHERAL [None]
  - VEIN DISORDER [None]
  - BACK PAIN [None]
  - ARTHRALGIA [None]
  - JOINT RANGE OF MOTION DECREASED [None]
  - PAIN IN EXTREMITY [None]
  - HIP ARTHROPLASTY [None]
  - FEELING ABNORMAL [None]
